FAERS Safety Report 5141003-1 (Version None)
Quarter: 2006Q4

REPORT INFORMATION
  Report Type: 
  Country: None (occurrence: None)
  Receive Date: 20061026
  Receipt Date: 20061016
  Transmission Date: 20070319
  Serious: Yes (Other)
  Sender: FDA-Public Use
  Company Number: 2006124447

PATIENT
  Age: 57 Year
  Sex: Female

DRUGS (6)
  1. ALDACTONE [Suspect]
     Indication: HYPERTENSION
     Dosage: 50 MG, ORAL
     Route: 048
     Dates: start: 20040611, end: 20060926
  2. DIART (AZOSEMIDE) [Suspect]
     Indication: HYPERTENSION
     Dosage: 30 MG (EVERY OTHER DAY), ORAL
     Route: 048
     Dates: end: 20060825
  3. CONIEL (BENEDIPINE HYDROCHLORIDE) [Concomitant]
  4. IMPROMEN (BROMPERIDOL) [Concomitant]
  5. AKINETON [Concomitant]
  6. METFORMIN HYDROCHLORIDE [Concomitant]

REACTIONS (3)
  - ALANINE AMINOTRANSFERASE INCREASED [None]
  - ASPARTATE AMINOTRANSFERASE INCREASED [None]
  - BLOOD LACTATE DEHYDROGENASE INCREASED [None]
